FAERS Safety Report 7262246-7 (Version None)
Quarter: 2011Q1

REPORT INFORMATION
  Report Type: 
  Country: None (occurrence: None)
  Receive Date: 20110119
  Receipt Date: 20110105
  Transmission Date: 20110831
  Serious: Yes (Hospitalization)
  Sender: FDA-Public Use
  Company Number: JPI-P-013393

PATIENT
  Age: 70 Year
  Sex: Male

DRUGS (3)
  1. MULTIPLE UNSPECIFIED MEDICATIONS [Concomitant]
  2. XYREM [Suspect]
     Indication: CATAPLEXY
     Dosage: 4.5 GM ( 2.25 GM,2 IN 1 D), ORAL
     Route: 048
     Dates: start: 20081119
  3. INSULIN GLARGINE [Concomitant]

REACTIONS (2)
  - PULMONARY OEDEMA [None]
  - NEUROPATHY PERIPHERAL [None]
